FAERS Safety Report 6408124-4 (Version None)
Quarter: 2009Q4

REPORT INFORMATION
  Report Type: 
  Country: None (occurrence: None)
  Receive Date: 20091016
  Receipt Date: 20091001
  Transmission Date: 20100525
  Serious: Yes (Death, Other)
  Sender: FDA-Public Use
  Company Number: 2009BI009148

PATIENT
  Age: 67 Year
  Sex: Male

DRUGS (8)
  1. ZEVALIN [Suspect]
     Indication: BONE MARROW CONDITIONING REGIMEN
     Dosage: 0.4 MCI/KG, 1X, IV
  2. RITUXIMAB [Concomitant]
  3. CARMUSTINE [Concomitant]
  4. ETOPOSIDE [Concomitant]
  5. ARACYTINE [Concomitant]
  6. MELPHALAN [Concomitant]
  7. METHOTREXATE [Concomitant]
  8. REPAGLINIDE [Concomitant]

REACTIONS (2)
  - BLADDER CANCER [None]
  - STEM CELL TRANSPLANT [None]
